FAERS Safety Report 7963306-5 (Version None)
Quarter: 2011Q4

REPORT INFORMATION
  Report Type: 
  Country: None (occurrence: None)
  Receive Date: 20111208
  Receipt Date: 20111201
  Transmission Date: 20120403
  Serious: No
  Sender: FDA-Public Use
  Company Number: US-BIOGENIDEC-2011BI045958

PATIENT
  Sex: Female

DRUGS (3)
  1. TYSABRI [Suspect]
     Indication: MULTIPLE SCLEROSIS
     Route: 042
     Dates: start: 20090422
  2. TOPICAL CREAM (NOS) [Concomitant]
     Indication: FIBROMYALGIA
     Route: 061
  3. AMPYRA [Concomitant]
     Indication: GAIT DISTURBANCE
     Dates: start: 20110801

REACTIONS (8)
  - CERVICAL POLYP [None]
  - MUSCULOSKELETAL STIFFNESS [None]
  - URTICARIA [None]
  - PRURITUS [None]
  - HEADACHE [None]
  - DYSPHAGIA [None]
  - ERYTHEMA [None]
  - BURNING SENSATION [None]
